FAERS Safety Report 4635951-6 (Version None)
Quarter: 2005Q2

REPORT INFORMATION
  Report Type: 
  Country: None (occurrence: None)
  Receive Date: 20050415
  Receipt Date: 20050407
  Transmission Date: 20051028
  Serious: Yes (Other)
  Sender: FDA-Public Use
  Company Number: PHFR2005GB01440

PATIENT
  Sex: Male

DRUGS (1)
  1. GLEEVEC [Suspect]
     Indication: EOSINOPHILIA
     Dosage: 100MG/DAY
     Route: 048

REACTIONS (2)
  - CARDIAC DISORDER [None]
  - PULMONARY OEDEMA [None]
